FAERS Safety Report 25959427 (Version 1)
Quarter: 2025Q4

REPORT INFORMATION
  Report Type: Spontaneous
  Country: US (occurrence: US)
  Receive Date: 20251026
  Receipt Date: 20251026
  Transmission Date: 20260117
  Serious: No
  Sender: ALEXION PHARMACEUTICALS
  Company Number: US-AstraZeneca-CH-00976516AP

PATIENT
  Sex: Male

DRUGS (1)
  1. BUDESONIDE\FORMOTEROL FUMARATE [Suspect]
     Active Substance: BUDESONIDE\FORMOTEROL FUMARATE
     Dosage: 80 MICROGRAM

REACTIONS (2)
  - Product dose omission issue [Unknown]
  - Flatulence [Unknown]
